FAERS Safety Report 23624684 (Version 2)
Quarter: 2024Q1

REPORT INFORMATION
  Report Type: Spontaneous
  Country: US (occurrence: US)
  Receive Date: 20240313
  Receipt Date: 20240314
  Transmission Date: 20240409
  Serious: Yes (Other)
  Sender: FDA-Public Use
  Company Number: US-HALEON-USCH2024013088

PATIENT
  Sex: Female

DRUGS (1)
  1. ROBITUSSIN NOS [Suspect]
     Active Substance: ACETAMINOPHEN\CHLORPHENIRAMINE HYDROCHLORIDE\DEXTROMETHORPHAN\GUAIFENESIN\PHENYLPROPANOLAMINE HYDROC
     Indication: Product used for unknown indication
     Dosage: UNK

REACTIONS (2)
  - Pneumonia fungal [Unknown]
  - Recalled product administered [Unknown]
